FAERS Safety Report 14102055 (Version 2)
Quarter: 2018Q2

REPORT INFORMATION
  Report Type: Report from Study
  Country: AU (occurrence: AU)
  Receive Date: 20171018
  Receipt Date: 20180409
  Transmission Date: 20180711
  Serious: Yes (Hospitalization, Other)
  Sender: FDA-Public Use
  Company Number: AU-BIOGEN-2016BI00306072

PATIENT
  Age: 55 Year
  Sex: Female

DRUGS (5)
  1. PLEGRIDY [Suspect]
     Active Substance: PEGINTERFERON BETA-1A
     Route: 058
  2. PLEGRIDY [Suspect]
     Active Substance: PEGINTERFERON BETA-1A
     Route: 058
  3. PLEGRIDY [Suspect]
     Active Substance: PEGINTERFERON BETA-1A
     Route: 058
     Dates: start: 20161011
  4. PLEGRIDY [Suspect]
     Active Substance: PEGINTERFERON BETA-1A
     Indication: MULTIPLE SCLEROSIS
     Route: 058
     Dates: start: 20161011
  5. PLEGRIDY [Suspect]
     Active Substance: PEGINTERFERON BETA-1A
     Route: 058
     Dates: start: 20161011

REACTIONS (23)
  - Swelling face [Not Recovered/Not Resolved]
  - Tooth infection [Unknown]
  - Malaise [Recovered/Resolved]
  - Injection site erythema [Recovered/Resolved with Sequelae]
  - Injection site pruritus [Recovered/Resolved with Sequelae]
  - Influenza like illness [Recovered/Resolved]
  - Cyst [Unknown]
  - Mood swings [Unknown]
  - Skin cancer [Unknown]
  - Tooth fracture [Unknown]
  - Blister [Unknown]
  - Breast mass [Recovered/Resolved with Sequelae]
  - Tooth abscess [Unknown]
  - Headache [Recovered/Resolved]
  - Vomiting [Recovered/Resolved]
  - Injection site irritation [Recovered/Resolved with Sequelae]
  - Skin infection [Recovered/Resolved with Sequelae]
  - Pain in jaw [Not Recovered/Not Resolved]
  - Injection site swelling [Recovered/Resolved with Sequelae]
  - Diarrhoea [Recovered/Resolved]
  - Anxiety [Not Recovered/Not Resolved]
  - Psoriasis [Unknown]
  - Nausea [Recovered/Resolved]

NARRATIVE: CASE EVENT DATE: 20161011
